FAERS Safety Report 11791382 (Version 3)
Quarter: 2016Q3

REPORT INFORMATION
  Report Type: Report from Study
  Country: None (occurrence: JP)
  Receive Date: 20151201
  Receipt Date: 20160815
  Transmission Date: 20161109
  Serious: Yes (Hospitalization, Other)
  Sender: FDA-Public Use
  Company Number: JP-ALEXION PHARMACEUTICALS INC-A201503335

PATIENT
  Age: 79 Year
  Sex: Female
  Weight: 49 kg

DRUGS (6)
  1. FOLIAMIN [Concomitant]
     Active Substance: FOLIC ACID
     Indication: PAROXYSMAL NOCTURNAL HAEMOGLOBINURIA
     Dosage: 3 DF, DAILY
     Route: 048
     Dates: start: 20090409
  2. SOLIRIS [Suspect]
     Active Substance: ECULIZUMAB
     Dosage: 900 MG, Q2W
     Route: 042
     Dates: start: 20130716
  3. PREDONINE [Concomitant]
     Active Substance: PREDNISOLONE\PREDNISOLONE ACETATE\PREDNISOLONE SODIUM SUCCINATE
     Indication: PAROXYSMAL NOCTURNAL HAEMOGLOBINURIA
     Dosage: 15 MG, QD
     Route: 065
     Dates: start: 20090413
  4. FERROMIA [Concomitant]
     Active Substance: FERROUS CITRATE
     Indication: PAROXYSMAL NOCTURNAL HAEMOGLOBINURIA
     Dosage: 100 MG, QD
     Route: 065
     Dates: start: 20051215, end: 20130826
  5. SOLIRIS [Suspect]
     Active Substance: ECULIZUMAB
     Indication: PAROXYSMAL NOCTURNAL HAEMOGLOBINURIA
     Dosage: 600 MG, QW
     Route: 042
     Dates: start: 20130617, end: 20130708
  6. WARFARIN [Concomitant]
     Active Substance: WARFARIN
     Indication: PAROXYSMAL NOCTURNAL HAEMOGLOBINURIA
     Dosage: 1 MG, QD
     Route: 065
     Dates: start: 20100902, end: 20150608

REACTIONS (4)
  - Enteritis infectious [Recovering/Resolving]
  - Thrombosis [Recovering/Resolving]
  - Ischaemic enteritis [Recovering/Resolving]
  - Haemolysis [Recovering/Resolving]

NARRATIVE: CASE EVENT DATE: 20130716
